FAERS Safety Report 13016863 (Version 1)
Quarter: 2016Q4

REPORT INFORMATION
  Report Type: Report from Study
  Country: US (occurrence: US)
  Receive Date: 20161212
  Receipt Date: 20161212
  Transmission Date: 20170207
  Serious: Yes (Hospitalization)
  Sender: FDA-Public Use
  Company Number: US-ROCHE-1866073

PATIENT
  Age: 85 Year
  Sex: Female

DRUGS (1)
  1. ERIVEDGE [Suspect]
     Active Substance: VISMODEGIB
     Indication: SKIN CANCER
     Dosage: ONGOING; UNKNOWN
     Route: 065

REACTIONS (6)
  - Neck mass [Unknown]
  - Inguinal mass [Unknown]
  - Lymphoma [Unknown]
  - Oedema peripheral [Unknown]
  - Lung disorder [Unknown]
  - Peripheral swelling [Unknown]

NARRATIVE: CASE EVENT DATE: 20161205
